FAERS Safety Report 25483693 (Version 1)
Quarter: 2025Q2

REPORT INFORMATION
  Report Type: Other
  Country: CN (occurrence: None)
  Receive Date: 20250626
  Receipt Date: 20250626
  Transmission Date: 20250716
  Serious: Yes (Hospitalization)
  Sender: INCYTE
  Company Number: CN-002147023-NVSC2025CN100585

PATIENT
  Age: 68 Year

DRUGS (1)
  1. RUXOLITINIB [Suspect]
     Active Substance: RUXOLITINIB
     Indication: Targeted cancer therapy
     Dosage: 15.000 MG, BID

REACTIONS (1)
  - Anaemia [Recovering/Resolving]
